FAERS Safety Report 9188112 (Version 1)
Quarter: 2013Q1

REPORT INFORMATION
  Report Type: Spontaneous
  Country: DE (occurrence: DE)
  Receive Date: 20130325
  Receipt Date: 20130325
  Transmission Date: 20140127
  Serious: Yes (Other)
  Sender: FDA-Public Use
  Company Number: DE-GLAXOSMITHKLINE-B0877440A

PATIENT
  Age: 45 Year
  Sex: Male

DRUGS (1)
  1. NEOTIGASON [Suspect]
     Indication: LICHENOID KERATOSIS
     Route: 048

REACTIONS (4)
  - Intracranial pressure increased [Recovered/Resolved]
  - Dizziness [Recovered/Resolved]
  - Headache [Recovered/Resolved]
  - Visual field defect [Recovered/Resolved]
